FAERS Safety Report 9283593 (Version 2)
Quarter: 2013Q4

REPORT INFORMATION
  Report Type: Spontaneous
  Country: US (occurrence: US)
  Receive Date: 20130510
  Receipt Date: 20131105
  Transmission Date: 20140711
  Serious: Yes (Hospitalization, Other)
  Sender: FDA-Public Use
  Company Number: US-BAYER-2013-058244

PATIENT
  Age: 38 Year
  Sex: Female

DRUGS (15)
  1. YAZ [Suspect]
     Dosage: UNK
     Dates: start: 2007, end: 2008
  2. YASMIN [Suspect]
     Dosage: UNK
     Dates: start: 2007, end: 2008
  3. OCELLA [Suspect]
     Dosage: UNK
     Dates: start: 2007, end: 2008
  4. PROAIR HFA [Concomitant]
     Dosage: 90 ?G, UNK
     Dates: start: 20081125
  5. NASACORT [Concomitant]
     Dosage: UNK
     Route: 045
     Dates: start: 20081104
  6. AZITHROMYCIN [Concomitant]
     Dosage: 250 MG, UNK
     Dates: start: 20081210
  7. LEVAQUIN [Concomitant]
     Dosage: 750 MG, UNK
     Dates: start: 20081219
  8. ALBUTEROL [Concomitant]
  9. ZYRTEC [Concomitant]
  10. ACYCLOVIR [ACICLOVIR] [Concomitant]
  11. FENTANYL [Concomitant]
  12. ZOFRAN [Concomitant]
  13. KEPPRA [Concomitant]
  14. ZITHROMAX [Concomitant]
  15. ROCEPHIN [Concomitant]

REACTIONS (10)
  - Cerebrovascular accident [None]
  - Transverse sinus thrombosis [None]
  - Jugular vein thrombosis [None]
  - Pain [None]
  - Injury [None]
  - General physical health deterioration [None]
  - Anxiety [None]
  - Emotional distress [None]
  - Abdominal pain [None]
  - Pain [None]
